FAERS Safety Report 17993761 (Version 5)
Quarter: 2020Q4

REPORT INFORMATION
  Report Type: Report from Study
  Country: US (occurrence: US)
  Receive Date: 20200708
  Receipt Date: 20201230
  Transmission Date: 20210113
  Serious: Yes (Hospitalization)
  Sender: FDA-Public Use
  Company Number: NVSC2020US192601

PATIENT
  Sex: Male

DRUGS (2)
  1. ENTRESTO [Suspect]
     Active Substance: SACUBITRIL\VALSARTAN
     Indication: CARDIAC FAILURE
     Dosage: 100 MG, BID (49/51 MG)
     Route: 048
  2. ENTRESTO [Suspect]
     Active Substance: SACUBITRIL\VALSARTAN
     Dosage: UNK (DOSE INCREASED)
     Route: 048

REACTIONS (9)
  - Hypotension [Unknown]
  - Fatigue [Unknown]
  - Concomitant disease aggravated [Unknown]
  - COVID-19 [Unknown]
  - Peripheral vein occlusion [Unknown]
  - Malaise [Unknown]
  - Chest pain [Unknown]
  - Nasopharyngitis [Unknown]
  - Pain in extremity [Not Recovered/Not Resolved]
